FAERS Safety Report 23179026 (Version 1)
Quarter: 2023Q4

REPORT INFORMATION
  Report Type: Other
  Country: US (occurrence: None)
  Receive Date: 20231113
  Receipt Date: 20231113
  Transmission Date: 20240110
  Serious: Yes (Death)
  Sender: FDA-Public Use
  Company Number: US-ROCHE-3451869

PATIENT
  Age: 82 Year
  Sex: Male

DRUGS (1)
  1. OCREVUS [Suspect]
     Active Substance: OCRELIZUMAB
     Indication: Relapsing multiple sclerosis
     Dosage: INFUSE 300MG IV ON DAYS 1 + 15, 600MG IV Q 6 MONTHS?DATE OF TREATMENT 03-MAY-2021
     Route: 042
     Dates: start: 20181114

REACTIONS (1)
  - Infection [Fatal]
